FAERS Safety Report 8269345-1 (Version None)
Quarter: 2012Q2

REPORT INFORMATION
  Report Type: 
  Country: None (occurrence: None)
  Receive Date: 20120409
  Receipt Date: 20120326
  Transmission Date: 20120825
  Serious: Yes (Hospitalization, Other)
  Sender: FDA-Public Use
  Company Number: FI-ROCHE-1053196

PATIENT
  Age: 41 Year
  Sex: Male

DRUGS (6)
  1. WARFARIN SODIUM [Concomitant]
     Indication: ANTICOAGULANT THERAPY
  2. CYCLOSPORINE [Suspect]
     Indication: IMMUNOSUPPRESSION
  3. METHYLPREDNISOLONE [Suspect]
     Indication: IMMUNOSUPPRESSION
  4. TACROLIMUS [Concomitant]
     Indication: IMMUNOSUPPRESSION
  5. VALCYTE [Concomitant]
     Indication: INFECTION PROPHYLAXIS
  6. MYCOPHENOLATE MOFETIL [Suspect]
     Indication: IMMUNOSUPPRESSION

REACTIONS (4)
  - LYMPHOMA [None]
  - GLOMERULONEPHRITIS [None]
  - THROMBOCYTOPENIA [None]
  - EPSTEIN-BARR VIRUS INFECTION [None]
